FAERS Safety Report 13787432 (Version 1)
Quarter: 2017Q3

REPORT INFORMATION
  Report Type: Spontaneous
  Country: US (occurrence: US)
  Receive Date: 20170725
  Receipt Date: 20170725
  Transmission Date: 20171127
  Serious: No
  Sender: FDA-Public Use
  Company Number: US-JNJFOC-20170626537

PATIENT
  Age: 67 Year
  Sex: Male
  Weight: 55.79 kg

DRUGS (9)
  1. SAPHRIS [Concomitant]
     Active Substance: ASENAPINE MALEATE
     Indication: PRODUCT USED FOR UNKNOWN INDICATION
     Route: 065
  2. CALCIUM [Concomitant]
     Active Substance: CALCIUM
     Indication: PRODUCT USED FOR UNKNOWN INDICATION
     Route: 065
  3. GARCINIA GUMMI-GUTTA [Concomitant]
     Indication: PRODUCT USED FOR UNKNOWN INDICATION
     Route: 065
  4. VITAMIN B12 [Concomitant]
     Active Substance: CYANOCOBALAMIN
     Indication: PRODUCT USED FOR UNKNOWN INDICATION
     Route: 065
  5. LYCOPENE [Concomitant]
     Active Substance: LYCOPENE
     Indication: PRODUCT USED FOR UNKNOWN INDICATION
     Route: 065
  6. TYLENOL [Suspect]
     Active Substance: ACETAMINOPHEN
     Indication: NASAL CONGESTION
     Dosage: 1 DOSING CUP 2 OR 3 TIMES
     Route: 048
     Dates: start: 20170624, end: 20170625
  7. TYLENOL [Suspect]
     Active Substance: ACETAMINOPHEN
     Indication: COUGH
     Dosage: 1 DOSING CUP 2 OR 3 TIMES
     Route: 048
     Dates: start: 20170624, end: 20170625
  8. MAGNESIUM [Concomitant]
     Active Substance: MAGNESIUM
     Indication: PROPHYLAXIS
     Route: 065
  9. LIPOZENE [Concomitant]
     Active Substance: KONJAC MANNAN
     Indication: PRODUCT USED FOR UNKNOWN INDICATION
     Route: 065

REACTIONS (4)
  - Product use in unapproved indication [Not Recovered/Not Resolved]
  - Product label confusion [Not Recovered/Not Resolved]
  - Rash pruritic [Not Recovered/Not Resolved]
  - Product label issue [Unknown]

NARRATIVE: CASE EVENT DATE: 20170624
